FAERS Safety Report 17265559 (Version 2)
Quarter: 2020Q1

REPORT INFORMATION
  Report Type: Spontaneous
  Country: JP (occurrence: JP)
  Receive Date: 20200114
  Receipt Date: 20200123
  Transmission Date: 20200409
  Serious: Yes (Hospitalization, Other)
  Sender: FDA-Public Use
  Company Number: JP-SA-2020SA004636

PATIENT
  Age: 74 Year
  Sex: Female

DRUGS (3)
  1. PERJETA [Suspect]
     Active Substance: PERTUZUMAB
     Indication: INVASIVE DUCTAL BREAST CARCINOMA
     Route: 065
  2. TRASTUZUMAB. [Suspect]
     Active Substance: TRASTUZUMAB
     Indication: INVASIVE DUCTAL BREAST CARCINOMA
     Route: 065
  3. DOCETAXEL. [Suspect]
     Active Substance: DOCETAXEL
     Indication: INVASIVE DUCTAL BREAST CARCINOMA
     Route: 041

REACTIONS (7)
  - Tumour ulceration [Recovering/Resolving]
  - Soft tissue necrosis [Recovering/Resolving]
  - General physical health deterioration [Recovered/Resolved]
  - Eating disorder [Recovered/Resolved]
  - Condition aggravated [Recovering/Resolving]
  - Dysstasia [Recovered/Resolved]
  - Decubitus ulcer [Recovered/Resolved]
